FAERS Safety Report 7996686 (Version 5)
Quarter: 2013Q2

REPORT INFORMATION
  Report Type: Spontaneous
  Country: US (occurrence: US)
  Receive Date: 20110617
  Receipt Date: 20130508
  Transmission Date: 20140414
  Serious: Yes (Other)
  Sender: FDA-Public Use
  Company Number: US-ASTRAZENECA-2010SE45395

PATIENT
  Age: 73 Year
  Sex: Female

DRUGS (4)
  1. SYMBICORT PMDI [Suspect]
     Indication: ASTHMA
     Dosage: FREQUENCY UNKNOWN
     Route: 055
     Dates: start: 2009
  2. NEXIUM [Suspect]
     Indication: GASTROOESOPHAGEAL REFLUX DISEASE
     Route: 048
  3. CRESTOR [Suspect]
     Indication: BLOOD CHOLESTEROL ABNORMAL
     Route: 048
  4. PLAVIX [Concomitant]
     Indication: THROMBOSIS PROPHYLAXIS

REACTIONS (3)
  - Seasonal allergy [Unknown]
  - Asthma [Unknown]
  - Dyspnoea [Unknown]
